FAERS Safety Report 4838578-6 (Version None)
Quarter: 2005Q4

REPORT INFORMATION
  Report Type: 
  Country: None (occurrence: None)
  Receive Date: 20051123
  Receipt Date: 20051123
  Transmission Date: 20060501
  Serious: No
  Sender: FDA-Public Use
  Company Number: None

PATIENT
  Age: 51 Year
  Sex: Male
  Weight: 86.4 kg

DRUGS (14)
  1. WARFARIN [Suspect]
     Indication: DEEP VEIN THROMBOSIS
     Dosage: ORAL
     Route: 048
  2. SILDENAFIL CITRATE [Concomitant]
  3. ATROPINE / DIPHENOXYLATE [Concomitant]
  4. HYDROCODONE / ACETAMINOPHEN [Concomitant]
  5. ACETAMINOPHEN [Concomitant]
  6. ALBUTEROL / IPRATROP [Concomitant]
  7. FOLIC ACID [Concomitant]
  8. OMEPRAZOLE [Concomitant]
  9. THIAMINE HCL [Concomitant]
  10. GABAPENTIN [Concomitant]
  11. LOPERAMIDE HCL [Concomitant]
  12. QUETIAPINE FUMARATE [Concomitant]
  13. RISPERIDONE [Concomitant]
  14. BISACODYL [Concomitant]

REACTIONS (1)
  - INTERNATIONAL NORMALISED RATIO INCREASED [None]
